FAERS Safety Report 11240898 (Version 4)
Quarter: 2015Q3

REPORT INFORMATION
  Report Type: Spontaneous
  Country: DE (occurrence: DE)
  Receive Date: 20150706
  Receipt Date: 20150814
  Transmission Date: 20151125
  Serious: Yes (Hospitalization, Other)
  Sender: FDA-Public Use
  Company Number: DE-BAYER-2015-367792

PATIENT
  Age: 77 Year
  Sex: Male
  Weight: 90 kg

DRUGS (4)
  1. OXYGEN. [Concomitant]
     Active Substance: OXYGEN
     Dosage: 2.5 L, Q1MIN
  2. MARCUMAR [Concomitant]
     Active Substance: PHENPROCOUMON
  3. ADEMPAS [Suspect]
     Active Substance: RIOCIGUAT
     Indication: PULMONARY HYPERTENSION
     Dosage: UNK
     Dates: start: 2014, end: 2015
  4. VENTAVIS [Suspect]
     Active Substance: ILOPROST

REACTIONS (22)
  - Staphylococcal infection [Recovering/Resolving]
  - Cor pulmonale chronic [None]
  - Skin warm [Recovering/Resolving]
  - Acute kidney injury [Recovering/Resolving]
  - Splenomegaly [None]
  - Erythema [Recovering/Resolving]
  - Sepsis [None]
  - Thrombophlebitis [Recovering/Resolving]
  - Cardiorenal syndrome [Recovering/Resolving]
  - Renal function test abnormal [Recovering/Resolving]
  - Right ventricular failure [None]
  - Venous thrombosis limb [None]
  - Hepatic congestion [None]
  - Ascites [None]
  - Hypertension [None]
  - Inflammatory marker increased [Recovering/Resolving]
  - Anuria [Recovering/Resolving]
  - Pleural effusion [None]
  - Pancreatic steatosis [None]
  - Pyrexia [Recovering/Resolving]
  - Joint swelling [Recovering/Resolving]
  - Headache [None]

NARRATIVE: CASE EVENT DATE: 20150618
